FAERS Safety Report 8008286 (Version 2)
Quarter: 2016Q3

REPORT INFORMATION
  Report Type: Report from Study
  Country: US (occurrence: US)
  Receive Date: 20110624
  Receipt Date: 20160930
  Transmission Date: 20161109
  Serious: Yes (Hospitalization, Other)
  Sender: FDA-Public Use
  Company Number: US-ROCHE-782838

PATIENT
  Age: 59 Year
  Sex: Female
  Weight: 102 kg

DRUGS (2)
  1. BEVACIZUMAB [Suspect]
     Active Substance: BEVACIZUMAB
     Indication: NEOPLASM MALIGNANT
     Dosage: LAST ADMINISTERED DATE:12/APR/2011,TOTAL DOSE THIS COURSE:1020 MG, OVER  30-90MIN ON DAY 1 AND 15.
     Route: 042
  2. TEMSIROLIMUS [Suspect]
     Active Substance: TEMSIROLIMUS
     Indication: NEOPLASM MALIGNANT
     Dosage: FREQUENCY: ON DAY 1,8,15 AND 22. LAST ADMINISTERED DATE: 19/APR/2011
     Route: 042

REACTIONS (5)
  - Rectal haemorrhage [Unknown]
  - Haematuria [Unknown]
  - Acute kidney injury [Unknown]
  - Blood creatinine increased [Not Recovered/Not Resolved]
  - Hypophosphataemia [Unknown]

NARRATIVE: CASE EVENT DATE: 20110426
